FAERS Safety Report 6452785-0 (Version None)
Quarter: 2009Q4

REPORT INFORMATION
  Report Type: 
  Country: None (occurrence: None)
  Receive Date: 20091124
  Receipt Date: 20091113
  Transmission Date: 20100525
  Serious: No
  Sender: FDA-Public Use
  Company Number: US-JNJFOC-20091104798

PATIENT
  Sex: Female
  Weight: 53.52 kg

DRUGS (1)
  1. FENTANYL CITRATE [Suspect]
     Indication: NECK PAIN
     Route: 062

REACTIONS (1)
  - WRONG TECHNIQUE IN DRUG USAGE PROCESS [None]
